FAERS Safety Report 4941801-0 (Version None)
Quarter: 2006Q1

REPORT INFORMATION
  Report Type: 
  Country: None (occurrence: None)
  Receive Date: 20060308
  Receipt Date: 20060223
  Transmission Date: 20060701
  Serious: Yes (Other)
  Sender: FDA-Public Use
  Company Number: 2006S1000043

PATIENT
  Sex: Female
  Weight: 85.45 kg

DRUGS (2)
  1. CUBICIN [Suspect]
     Indication: ENTEROCOCCAL BACTERAEMIA
     Dosage: 4 MG/KG;Q24H
  2. VANCOMYCIN [Concomitant]

REACTIONS (1)
  - NEPHRITIS INTERSTITIAL [None]
